FAERS Safety Report 9745183 (Version 1)
Quarter: 2013Q4

REPORT INFORMATION
  Report Type: Spontaneous
  Country: US (occurrence: US)
  Receive Date: 20131211
  Receipt Date: 20131211
  Transmission Date: 20140711
  Serious: No
  Sender: FDA-Public Use
  Company Number: US-PFIZER INC-2013353765

PATIENT
  Sex: Female

DRUGS (2)
  1. CELEBREX [Suspect]
     Indication: MIGRAINE
     Dosage: UNK
  2. CELEBREX [Suspect]
     Indication: HEADACHE

REACTIONS (2)
  - Off label use [Unknown]
  - Hypersensitivity [Unknown]
